FAERS Safety Report 13020715 (Version 1)
Quarter: 2016Q4

REPORT INFORMATION
  Report Type: Spontaneous
  Country: AU (occurrence: AU)
  Receive Date: 20161212
  Receipt Date: 20161212
  Transmission Date: 20170207
  Serious: Yes (Other)
  Sender: FDA-Public Use
  Company Number: AU-AMGEN-AUSSP2016173220

PATIENT
  Age: 86 Year
  Sex: Female

DRUGS (6)
  1. SALCATONIN [Concomitant]
     Active Substance: CALCITONIN SALMON
  2. PAMISOL [Concomitant]
     Active Substance: PAMIDRONATE DISODIUM
  3. THYROXINE [Concomitant]
     Active Substance: LEVOTHYROXINE
  4. PROLIA [Suspect]
     Active Substance: DENOSUMAB
     Indication: PRODUCT USED FOR UNKNOWN INDICATION
     Dosage: 60 MG, UNK
     Route: 065
     Dates: start: 20160811
  5. FELODIPINE. [Concomitant]
     Active Substance: FELODIPINE
  6. PRAZOSIN [Concomitant]
     Active Substance: PRAZOSIN

REACTIONS (5)
  - Hypocalcaemia [Recovered/Resolved]
  - Confusional state [Recovered/Resolved]
  - Electrocardiogram QT prolonged [Recovered/Resolved]
  - Decreased appetite [Recovered/Resolved]
  - Dyspnoea [Recovered/Resolved]

NARRATIVE: CASE EVENT DATE: 20160822
